FAERS Safety Report 6937554-7 (Version None)
Quarter: 2010Q3

REPORT INFORMATION
  Report Type: 
  Country: None (occurrence: None)
  Receive Date: 20100823
  Receipt Date: 20100823
  Transmission Date: 20110219
  Serious: Yes (Life-Threatening, Other)
  Sender: FDA-Public Use
  Company Number: None

PATIENT
  Sex: Male
  Weight: 83.9154 kg

DRUGS (2)
  1. NEXIUM [Suspect]
     Indication: DYSPEPSIA
     Dosage: 40 MG DELAYED RELEASE 1 DAILY PO
     Route: 048
     Dates: start: 20100811, end: 20100813
  2. NEXIUM [Suspect]
     Indication: OESOPHAGEAL DISCOMFORT
     Dosage: 40 MG DELAYED RELEASE 1 DAILY PO
     Route: 048
     Dates: start: 20100811, end: 20100813

REACTIONS (2)
  - ANAPHYLACTIC REACTION [None]
  - SHOCK [None]
